FAERS Safety Report 19005917 (Version 2)
Quarter: 2021Q1

REPORT INFORMATION
  Report Type: Spontaneous
  Country: US (occurrence: US)
  Receive Date: 20210314
  Receipt Date: 20210319
  Transmission Date: 20210420
  Serious: No
  Sender: FDA-Public Use
  Company Number: US-ORGANON-O2103USA000487

PATIENT
  Age: 30 Year
  Sex: Female
  Weight: 71.67 kg

DRUGS (2)
  1. NEXPLANON [Suspect]
     Active Substance: ETONOGESTREL
     Dosage: 1 ROD EVERY 3 YEARS IN UPPER LEFT ARM
     Route: 059
     Dates: start: 20210302
  2. NEXPLANON [Suspect]
     Active Substance: ETONOGESTREL
     Dosage: 1 ROD IN UPPER LEFT ARM
     Dates: start: 20210302, end: 20210302

REACTIONS (3)
  - No adverse event [Unknown]
  - Complication of device insertion [Recovered/Resolved]
  - Product quality issue [Unknown]

NARRATIVE: CASE EVENT DATE: 20210302
